FAERS Safety Report 16397606 (Version 1)
Quarter: 2019Q2

REPORT INFORMATION
  Report Type: Spontaneous
  Country: US (occurrence: US)
  Receive Date: 20190606
  Receipt Date: 20190606
  Transmission Date: 20190711
  Serious: No
  Sender: FDA-Public Use
  Company Number: US-TEVA-2018-US-950320

PATIENT
  Age: 28 Year
  Sex: Female

DRUGS (5)
  1. ENTERIC-COATED MYCOPHENOLIC ACID [Suspect]
     Active Substance: MYCOPHENOLIC ACID
     Indication: IMMUNOSUPPRESSANT DRUG THERAPY
     Dosage: FORMULATION: ENTERIC-COATED
     Route: 065
  2. PREDNISONE. [Suspect]
     Active Substance: PREDNISONE
     Indication: IMMUNOSUPPRESSANT DRUG THERAPY
     Route: 065
  3. BELATACEPT [Suspect]
     Active Substance: BELATACEPT
     Indication: IMMUNOSUPPRESSANT DRUG THERAPY
     Route: 050
  4. AZATHIOPRINE. [Suspect]
     Active Substance: AZATHIOPRINE
     Indication: IMMUNOSUPPRESSANT DRUG THERAPY
     Route: 065
  5. BELATACEPT [Suspect]
     Active Substance: BELATACEPT
     Indication: IMMUNOSUPPRESSANT DRUG THERAPY
     Dosage: 10 MG/KG DAYS 0 AND 5 WITH SUBSEQUENT 10 MG/ KG DOSES AT WEEKS 2, 4, 8, AND 12
     Route: 050

REACTIONS (2)
  - Maternal exposure during pregnancy [Unknown]
  - Normal newborn [Recovered/Resolved]
